FAERS Safety Report 6691263-0 (Version None)
Quarter: 2010Q2

REPORT INFORMATION
  Report Type: 
  Country: None (occurrence: None)
  Receive Date: 20100422
  Receipt Date: 20100412
  Transmission Date: 20101027
  Serious: Yes (Hospitalization, Other)
  Sender: FDA-Public Use
  Company Number: US-ASTRAZENECA-2006UW23421

PATIENT
  Age: 15239 Day
  Sex: Male
  Weight: 81.6 kg

DRUGS (6)
  1. SEROQUEL [Suspect]
     Indication: SLEEP DISORDER
     Route: 048
     Dates: start: 20040601, end: 20060901
  2. ACTOS [Concomitant]
  3. GLUCOPHAGE [Concomitant]
  4. VALIUM [Concomitant]
  5. PROTONIX [Concomitant]
  6. METHADONE HCL [Concomitant]

REACTIONS (17)
  - ACUTE RESPIRATORY FAILURE [None]
  - BLOOD AMYLASE INCREASED [None]
  - DIABETIC KETOACIDOSIS [None]
  - FALL [None]
  - HEPATIC ENZYME INCREASED [None]
  - HYPERKALAEMIA [None]
  - LACTIC ACIDOSIS [None]
  - LEUKOCYTOSIS [None]
  - MENINGITIS [None]
  - MENTAL STATUS CHANGES [None]
  - PAIN [None]
  - RENAL FAILURE ACUTE [None]
  - RENAL IMPAIRMENT [None]
  - ROAD TRAFFIC ACCIDENT [None]
  - SEPSIS [None]
  - SYNCOPE [None]
  - TYPE 2 DIABETES MELLITUS [None]
